FAERS Safety Report 9922319 (Version 4)
Quarter: 2014Q2

REPORT INFORMATION
  Report Type: Spontaneous
  Country: US (occurrence: US)
  Receive Date: 20140225
  Receipt Date: 20140401
  Transmission Date: 20141212
  Serious: Yes (Hospitalization)
  Sender: FDA-Public Use
  Company Number: US-ACTELION-A-NJ2014-95326

PATIENT
  Age: 73 Year
  Sex: Female

DRUGS (2)
  1. VENTAVIS [Suspect]
     Indication: PULMONARY ARTERIAL HYPERTENSION
     Dosage: 5 MCG, 6X/DAY
     Route: 055
     Dates: start: 20050805
  2. SILDENAFIL [Concomitant]

REACTIONS (3)
  - Colitis ulcerative [Recovering/Resolving]
  - Large intestine perforation [Recovering/Resolving]
  - Colectomy [Recovering/Resolving]
